FAERS Safety Report 4553035-2 (Version None)
Quarter: 2005Q1

REPORT INFORMATION
  Report Type: 
  Country: None (occurrence: None)
  Receive Date: 20050113
  Receipt Date: 20041228
  Transmission Date: 20050727
  Serious: Yes (Other)
  Sender: FDA-Public Use
  Company Number: 2004-00945

PATIENT
  Age: 59 Year
  Sex: Female
  Weight: 93.9 kg

DRUGS (10)
  1. VELCADE [Suspect]
     Indication: MULTIPLE MYELOMA
     Dosage: 2.70 MG, INTRAVENOUS
     Route: 042
     Dates: start: 20040512, end: 20040715
  2. ZOMETA [Concomitant]
  3. ZOLOFT [Concomitant]
  4. ZOFRAN [Concomitant]
  5. CALCIUM (CALCIUM) [Concomitant]
  6. VITAMIN D [Concomitant]
  7. MORPHINE SULFATE [Concomitant]
  8. INSULIN [Concomitant]
  9. DEXAMETHASONE [Concomitant]
  10. COMPAZINE [Concomitant]

REACTIONS (7)
  - ANEURYSM [None]
  - CONGESTIVE CARDIOMYOPATHY [None]
  - CONSTIPATION [None]
  - EJECTION FRACTION DECREASED [None]
  - NAUSEA [None]
  - OEDEMA PERIPHERAL [None]
  - VOMITING [None]
